FAERS Safety Report 8873348 (Version 2)
Quarter: 2012Q4

REPORT INFORMATION
  Report Type: 
  Country: US (occurrence: US)
  Receive Date: 20121029
  Receipt Date: 20121213
  Transmission Date: 20130627
  Serious: Yes (Hospitalization)
  Sender: FDA-Public Use
  Company Number: US-B.I. PHARMACEUTICALS,INC./RIDGEFIELD-2012-BP-26342BP

PATIENT
  Age: 64 Year
  Sex: Female
  Weight: 121 kg

DRUGS (9)
  1. PRADAXA [Suspect]
     Indication: PULMONARY EMBOLISM
     Dosage: 300 mg
     Route: 048
     Dates: start: 20110501, end: 20121020
  2. PRADAXA [Suspect]
     Indication: DEEP VEIN THROMBOSIS
  3. PRADAXA [Suspect]
     Indication: DRUG INTOLERANCE
  4. NEXIUM [Concomitant]
     Indication: GASTROOESOPHAGEAL REFLUX DISEASE
     Dosage: 40 mg
  5. CELEXA [Concomitant]
     Indication: DEPRESSION
     Dosage: 20 mg
  6. ADVAIR [Concomitant]
  7. EXALGO [Concomitant]
  8. DILAUDID [Concomitant]
  9. NORVASC [Concomitant]

REACTIONS (1)
  - Pulmonary embolism [Not Recovered/Not Resolved]
